FAERS Safety Report 10786458 (Version 1)
Quarter: 2015Q1

REPORT INFORMATION
  Report Type: Spontaneous
  Country: CA (occurrence: None)
  Receive Date: 20150210
  Receipt Date: 20150210
  Transmission Date: 20150721
  Serious: No
  Sender: FDA-Public Use
  Company Number: None

PATIENT
  Age: 25 Year
  Sex: Female
  Weight: 52 kg

DRUGS (1)
  1. METRONIDAZOLE 400MG [Suspect]
     Active Substance: METRONIDAZOLE
     Indication: INFECTION
     Route: 048
     Dates: start: 20150206, end: 20150209

REACTIONS (6)
  - Pain [None]
  - Feeling abnormal [None]
  - Dry mouth [None]
  - Heart rate increased [None]
  - Dizziness [None]
  - Dysgeusia [None]

NARRATIVE: CASE EVENT DATE: 20150209
